FAERS Safety Report 9084962 (Version 1)
Quarter: 2013Q1

REPORT INFORMATION
  Report Type: Report from Study
  Country: US (occurrence: US)
  Receive Date: 20130129
  Receipt Date: 20130129
  Transmission Date: 20140127
  Serious: No
  Sender: FDA-Public Use
  Company Number: US-ABBOTT-12P-163-0949712-00

PATIENT
  Age: 60 Year
  Sex: Female

DRUGS (4)
  1. HUMIRA 40 MG/0.8 ML PEN [Suspect]
     Indication: ANKYLOSING SPONDYLITIS
     Dates: start: 201112, end: 20120610
  2. COUMADIN [Concomitant]
     Indication: PRODUCT USED FOR UNKNOWN INDICATION
     Dosage: 7.5MG DAILY
  3. PRESTIQ [Concomitant]
     Indication: MUSCLE SPASMS
     Dosage: 50MG DAILY
     Route: 048
  4. TRAMADOL [Concomitant]
     Indication: MUSCLE SPASMS

REACTIONS (1)
  - Bronchitis [Not Recovered/Not Resolved]
